FAERS Safety Report 23465448 (Version 1)
Quarter: 2024Q1

REPORT INFORMATION
  Report Type: Other
  Country: RO (occurrence: None)
  Receive Date: 20240201
  Receipt Date: 20240201
  Transmission Date: 20240409
  Serious: Yes (Hospitalization, Other)
  Sender: FDA-Public Use
  Company Number: RO-ROCHE-3499854

PATIENT
  Sex: Male
  Weight: 60 kg

DRUGS (1)
  1. ALECENSA [Suspect]
     Active Substance: ALECTINIB HYDROCHLORIDE
     Indication: Lung cancer metastatic
     Dosage: FOUR TABLETS IN THE MORNING, AND FOUR IN THE EVENING. ON AN UNKNOWN DATE IN SEP/2023, ALECTINIB WAS
     Route: 065
     Dates: start: 202208

REACTIONS (2)
  - Pleurisy [Unknown]
  - Infarction [Unknown]
